FAERS Safety Report 21450704 (Version 2)
Quarter: 2022Q4

REPORT INFORMATION
  Report Type: Spontaneous
  Country: US (occurrence: US)
  Receive Date: 20221013
  Receipt Date: 20221013
  Transmission Date: 20230113
  Serious: Yes (Other)
  Sender: FDA-Public Use
  Company Number: US-PFIZER INC-PV202200076147

PATIENT
  Age: 16 Year
  Sex: Male

DRUGS (1)
  1. FENTANYL CITRATE [Suspect]
     Active Substance: FENTANYL CITRATE
     Indication: Sedation
     Dosage: UNK

REACTIONS (3)
  - Deafness bilateral [Unknown]
  - Tinnitus [Unknown]
  - Off label use [Unknown]
